FAERS Safety Report 7812957-7 (Version None)
Quarter: 2011Q4

REPORT INFORMATION
  Report Type: 
  Country: None (occurrence: None)
  Receive Date: 20111013
  Receipt Date: 20111005
  Transmission Date: 20120403
  Serious: Yes (Other)
  Sender: FDA-Public Use
  Company Number: CA-B.I. PHARMACEUTICALS,INC./RIDGEFIELD-2011-BP-12746YA

PATIENT
  Age: 62 Year
  Sex: Male

DRUGS (6)
  1. CYCLOPENTOLATE HCL [Suspect]
  2. TOBRAMYCIN [Suspect]
  3. GATIFLOXACIN (GATIFLOXACOIN) [Concomitant]
  4. HOMATROPINE (HOMATROPINE) [Concomitant]
  5. TAMSULOSIN HCL [Suspect]
  6. DEXAMETHASONE SODIUM PHOSPHATE [Suspect]

REACTIONS (6)
  - INTRAOCULAR PRESSURE INCREASED [None]
  - EYE PAIN [None]
  - VISUAL ACUITY REDUCED [None]
  - ANGLE CLOSURE GLAUCOMA [None]
  - FLOPPY IRIS SYNDROME [None]
  - VOMITING [None]
